FAERS Safety Report 20071738 (Version 2)
Quarter: 2021Q4

REPORT INFORMATION
  Report Type: Spontaneous
  Country: US (occurrence: US)
  Receive Date: 20211116
  Receipt Date: 20211222
  Transmission Date: 20220303
  Serious: No
  Sender: FDA-Public Use
  Company Number: US-THERATECHNOLOGIES INC.-2021-THE-TES-000165

PATIENT
  Age: 80 Year
  Sex: Male

DRUGS (2)
  1. EGRIFTA SV [Suspect]
     Active Substance: TESAMORELIN ACETATE
     Indication: Product used for unknown indication
     Dosage: UNK
     Route: 058
  2. EGRIFTA SV [Suspect]
     Active Substance: TESAMORELIN ACETATE
     Dosage: UNK
     Route: 058

REACTIONS (2)
  - Musculoskeletal stiffness [Not Recovered/Not Resolved]
  - Product dose omission issue [Unknown]

NARRATIVE: CASE EVENT DATE: 20211105
